FAERS Safety Report 13544683 (Version 1)
Quarter: 2017Q2

REPORT INFORMATION
  Report Type: Spontaneous
  Country: GB (occurrence: GB)
  Receive Date: 20170515
  Receipt Date: 20170515
  Transmission Date: 20170830
  Serious: Yes (Hospitalization)
  Sender: FDA-Public Use
  Company Number: GB-BTG INTERNATIONAL LTD-2017BTG01252

PATIENT
  Age: 49 Year
  Sex: Female

DRUGS (2)
  1. DIGIFAB [Suspect]
     Active Substance: OVINE DIGOXIN IMMUNE FAB
     Indication: TOXICITY TO VARIOUS AGENTS
     Dosage: 40 MG, OVER 2 DAYS
  2. DIGIFAB [Suspect]
     Active Substance: OVINE DIGOXIN IMMUNE FAB
     Dosage: UNK

REACTIONS (2)
  - Off label use [Unknown]
  - Atrioventricular block first degree [Unknown]
